FAERS Safety Report 8481747-7 (Version None)
Quarter: 2012Q3

REPORT INFORMATION
  Report Type: 
  Country: None (occurrence: None)
  Receive Date: 20120702
  Receipt Date: 20120622
  Transmission Date: 20120928
  Serious: Yes (Death, Other)
  Sender: FDA-Public Use
  Company Number: BG-CELGENEUS-022-21880-12063253

PATIENT
  Sex: Female
  Weight: 63 kg

DRUGS (7)
  1. VINCRISTINE [Suspect]
     Indication: MULTIPLE MYELOMA
     Dosage: 2 MILLIGRAM
     Route: 065
     Dates: start: 20120526, end: 20120602
  2. DOXORUBICIN HCL [Suspect]
     Indication: MULTIPLE MYELOMA
     Dosage: 80 MILLIGRAM
     Route: 065
     Dates: start: 20120526, end: 20120526
  3. DEXAMETHASONE [Suspect]
     Dosage: 40 MILLIGRAM
     Route: 065
     Dates: start: 20120602, end: 20120605
  4. CYCLOPHOSPHAMIDE [Suspect]
     Indication: MULTIPLE MYELOMA
     Dosage: 1000 MILLIGRAM
     Route: 065
     Dates: start: 20120523, end: 20120525
  5. UROMITHEXANE [Concomitant]
     Indication: MULTIPLE MYELOMA
     Dosage: 800 MILLIGRAM
     Route: 065
     Dates: start: 20120523, end: 20120525
  6. REVLIMID [Suspect]
     Indication: MULTIPLE MYELOMA
     Dosage: 25 MILLIGRAM
     Route: 048
     Dates: start: 20120530, end: 20120607
  7. DEXAMETHASONE [Suspect]
     Indication: MULTIPLE MYELOMA
     Dosage: 40 MILLIGRAM
     Route: 065
     Dates: start: 20120523, end: 20120526

REACTIONS (2)
  - CIRCULATORY COLLAPSE [None]
  - BONE MARROW FAILURE [None]
